FAERS Safety Report 4559216-6 (Version None)
Quarter: 2005Q1

REPORT INFORMATION
  Report Type: 
  Country: None (occurrence: None)
  Receive Date: 20050121
  Receipt Date: 20050121
  Transmission Date: 20050727
  Serious: No
  Sender: FDA-Public Use
  Company Number: None

PATIENT
  Sex: Male
  Weight: 100 kg

DRUGS (10)
  1. LOVENOX [Suspect]
     Indication: THROMBOSIS PROPHYLAXIS
     Dosage: 30 MG   TWICE DAILY  SUBCUTANEO
     Route: 058
     Dates: start: 20040709, end: 20040801
  2. ARIPIPRAZOLE [Concomitant]
  3. ASPIRIN [Concomitant]
  4. SURFAK [Concomitant]
  5. FOLATE [Concomitant]
  6. GABAPENTIN [Concomitant]
  7. LORTAB [Concomitant]
  8. ZANTAC [Concomitant]
  9. THIAMINE [Concomitant]
  10. EFFEXOR [Concomitant]

REACTIONS (1)
  - THROMBOCYTHAEMIA [None]
